FAERS Safety Report 25436853 (Version 2)
Quarter: 2025Q3

REPORT INFORMATION
  Report Type: Spontaneous
  Country: EU (occurrence: EU)
  Receive Date: 20250615
  Receipt Date: 20250715
  Transmission Date: 20251020
  Serious: Yes (Other)
  Sender: BAUSCH AND LOMB
  Company Number: EU-BEH-2023155223

PATIENT
  Age: 82 Year
  Sex: Female

DRUGS (14)
  1. DEXAMETHASONE [Suspect]
     Active Substance: DEXAMETHASONE
     Indication: Immune thrombocytopenia
     Route: 065
     Dates: start: 2021
  2. DEXAMETHASONE [Suspect]
     Active Substance: DEXAMETHASONE
     Route: 065
     Dates: start: 2021
  3. DEXAMETHASONE [Suspect]
     Active Substance: DEXAMETHASONE
     Route: 065
     Dates: start: 202108
  4. HUMAN IMMUNOGLOBULIN G [Suspect]
     Active Substance: HUMAN IMMUNOGLOBULIN G
     Indication: Immune thrombocytopenia
     Route: 065
     Dates: start: 2021
  5. ELTROMBOPAG [Suspect]
     Active Substance: ELTROMBOPAG
     Indication: Immune thrombocytopenia
     Route: 048
     Dates: start: 2021
  6. ELTROMBOPAG [Suspect]
     Active Substance: ELTROMBOPAG
     Route: 048
     Dates: start: 2021, end: 2021
  7. ELTROMBOPAG [Suspect]
     Active Substance: ELTROMBOPAG
     Route: 065
     Dates: start: 2021
  8. TOLODODEKIN ALFA [Suspect]
     Active Substance: TOLODODEKIN ALFA
     Indication: Immune thrombocytopenia
     Dosage: 16 MILLIGRAM/KILOGRAM, QW
     Route: 065
     Dates: start: 202108
  9. PREDNISOLONE [Suspect]
     Active Substance: PREDNISOLONE
     Indication: Immune thrombocytopenia
     Route: 065
     Dates: start: 2021
  10. PREDNISOLONE [Suspect]
     Active Substance: PREDNISOLONE
     Route: 065
     Dates: start: 2021
  11. RITUXIMAB [Suspect]
     Active Substance: RITUXIMAB
     Indication: Immune thrombocytopenia
     Dosage: 375 MG/M2 ONCE EVERY WEEK [Q1W] FOR FOUR CYCLES
     Route: 065
     Dates: start: 2021
  12. EDOXABAN [Concomitant]
     Active Substance: EDOXABAN
     Indication: Cardiac ablation
     Route: 048
     Dates: start: 2019
  13. EDOXABAN [Concomitant]
     Active Substance: EDOXABAN
     Indication: Atrial fibrillation
  14. EDOXABAN [Concomitant]
     Active Substance: EDOXABAN
     Indication: Cardiac resynchronisation therapy

REACTIONS (1)
  - Therapy non-responder [Unknown]
